FAERS Safety Report 16280886 (Version 1)
Quarter: 2019Q2

REPORT INFORMATION
  Report Type: Spontaneous
  Country: US (occurrence: US)
  Receive Date: 20190402
  Receipt Date: 20190402
  Transmission Date: 20190711
  Serious: No
  Sender: FDA-Public Use
  Company Number: None

PATIENT
  Age: 82 Year
  Sex: Male

DRUGS (1)
  1. TEMOZOLOMIDE CAP [Suspect]
     Active Substance: TEMOZOLOMIDE

REACTIONS (4)
  - Vomiting [None]
  - Off label use [None]
  - Chest pain [None]
  - Dehydration [None]

NARRATIVE: CASE EVENT DATE: 20190402
